FAERS Safety Report 5130333-5 (Version None)
Quarter: 2006Q4

REPORT INFORMATION
  Report Type: 
  Country: None (occurrence: None)
  Receive Date: 20061018
  Receipt Date: 20061018
  Transmission Date: 20070319
  Serious: Yes (Hospitalization)
  Sender: FDA-Public Use
  Company Number: None

PATIENT
  Age: 63 Year
  Sex: Male
  Weight: 72.5755 kg

DRUGS (14)
  1. BEVACIZUMAB  100 MG VIALS -25 GENENTECH MG/ ML - [Suspect]
     Indication: PANCREATIC CARCINOMA METASTATIC
     Dosage: 764 MG Q 2 WEEKS IV
     Route: 042
     Dates: start: 20060919, end: 20061003
  2. ROBAXIN [Concomitant]
  3. LASIX [Concomitant]
  4. BUSPAR [Concomitant]
  5. CLORAZEPATE [Concomitant]
  6. LOTREL [Concomitant]
  7. BETAXOLOL [Concomitant]
  8. AVANDIA [Concomitant]
  9. MS CONTIN [Concomitant]
  10. LORTAB [Concomitant]
  11. GEMCITABINE [Concomitant]
  12. OXALIPLATIN [Concomitant]
  13. ZOFRAN [Concomitant]
  14. DEXAMETHASONE [Concomitant]

REACTIONS (3)
  - ABDOMINAL HERNIA [None]
  - ALPHA HAEMOLYTIC STREPTOCOCCAL INFECTION [None]
  - POSTOPERATIVE WOUND COMPLICATION [None]
